FAERS Safety Report 13708594 (Version 2)
Quarter: 2017Q3

REPORT INFORMATION
  Report Type: Spontaneous
  Country: US (occurrence: US)
  Receive Date: 20170630
  Receipt Date: 20170810
  Transmission Date: 20171127
  Serious: Yes (Other)
  Sender: FDA-Public Use
  Company Number: US-BAUSCH-BL-2017-019547

PATIENT
  Age: 66 Year
  Sex: Female
  Weight: 83.99 kg

DRUGS (4)
  1. NEXIUM [Concomitant]
     Active Substance: ESOMEPRAZOLE MAGNESIUM
     Indication: GASTROOESOPHAGEAL REFLUX DISEASE
     Dosage: STARTED SEVERAL YEARS AGO
     Route: 048
  2. ZOVIRAX [Suspect]
     Active Substance: ACYCLOVIR
     Route: 061
     Dates: start: 201706
  3. ZOVIRAX [Suspect]
     Active Substance: ACYCLOVIR
     Indication: ORAL HERPES
     Dosage: USING FROM 15 YEARS, ?5 TO 10 TIMES IN A DAY ON AVERAGE.
     Route: 061
     Dates: start: 2002
  4. ZOVIRAX [Suspect]
     Active Substance: ACYCLOVIR
     Indication: ORAL HERPES
     Dosage: USING FROM 15 YEARS, ?5 TO 10 TIMES IN A DAY ON AVERAGE.
     Route: 061
     Dates: start: 2002

REACTIONS (4)
  - Condition aggravated [Recovered/Resolved]
  - Off label use [Unknown]
  - Oral herpes [Recovered/Resolved]
  - Drug ineffective [Unknown]
